FAERS Safety Report 9143455 (Version 1)
Quarter: 2013Q1

REPORT INFORMATION
  Report Type: Spontaneous
  Country: None (occurrence: US)
  Receive Date: 20130306
  Receipt Date: 20130306
  Transmission Date: 20140127
  Serious: No
  Sender: FDA-Public Use
  Company Number: US-ENDO PHARMACEUTICALS INC.-OPER20120311

PATIENT
  Age: 35 Year
  Sex: Male
  Weight: 75.82 kg

DRUGS (3)
  1. OPANA ER 30MG [Suspect]
     Indication: PANCREATITIS
     Route: 048
     Dates: start: 2010, end: 201203
  2. OPANA ER 30MG [Suspect]
     Indication: PERONEAL MUSCULAR ATROPHY
  3. VENLAFAXINE HCL TABLETS [Concomitant]
     Indication: PRODUCT USED FOR UNKNOWN INDICATION
     Dosage: UNK
     Route: 048
     Dates: end: 20120425

REACTIONS (1)
  - Pancreatitis [Unknown]
